FAERS Safety Report 25352836 (Version 3)
Quarter: 2025Q3

REPORT INFORMATION
  Report Type: Report from Study
  Country: IN (occurrence: IN)
  Receive Date: 20250523
  Receipt Date: 20250707
  Transmission Date: 20251020
  Serious: Yes (Hospitalization)
  Sender: PFIZER
  Company Number: IN-TAKEDA-2025TUS046945

PATIENT
  Age: 34 Year
  Sex: Female

DRUGS (2)
  1. ADCETRIS [Suspect]
     Active Substance: BRENTUXIMAB VEDOTIN
     Indication: Hodgkin^s disease
     Route: 042
     Dates: start: 20250508
  2. ADCETRIS [Suspect]
     Active Substance: BRENTUXIMAB VEDOTIN
     Route: 042

REACTIONS (5)
  - White blood cell count decreased [Unknown]
  - Jugular vein occlusion [Unknown]
  - Vascular compression [Unknown]
  - Lymphadenopathy [Unknown]
  - Inappropriate schedule of product administration [Unknown]
